FAERS Safety Report 8592523-9 (Version None)
Quarter: 2012Q3

REPORT INFORMATION
  Report Type: 
  Country: None (occurrence: None)
  Receive Date: 20120814
  Receipt Date: 20120809
  Transmission Date: 20120928
  Serious: Yes (Other)
  Sender: FDA-Public Use
  Company Number: ES-PFIZER INC-2012195610

PATIENT
  Age: 31 Year

DRUGS (2)
  1. QUETIAPINE FUMARATE [Suspect]
     Dosage: 300 MG/DAY
  2. METRONIDAZOLE [Suspect]
     Dosage: UNK

REACTIONS (1)
  - PARKINSONISM [None]
